FAERS Safety Report 7169772-X (Version None)
Quarter: 2010Q4

REPORT INFORMATION
  Report Type: 
  Country: None (occurrence: None)
  Receive Date: 20101217
  Receipt Date: 20100510
  Transmission Date: 20110411
  Serious: No
  Sender: FDA-Public Use
  Company Number: A0858942A

PATIENT
  Age: 55 Year
  Sex: Female

DRUGS (2)
  1. SORIATANE [Suspect]
     Dosage: 50MG PER DAY
     Route: 048
     Dates: start: 20070901
  2. PAIN MEDICATION [Concomitant]

REACTIONS (4)
  - BLOOD CHOLESTEROL INCREASED [None]
  - BLOOD GLUCOSE INCREASED [None]
  - BLOOD PRESSURE INCREASED [None]
  - BLOOD TRIGLYCERIDES INCREASED [None]
